FAERS Safety Report 23319273 (Version 1)
Quarter: 2023Q4

REPORT INFORMATION
  Report Type: Spontaneous
  Country: JP (occurrence: JP)
  Receive Date: 20231220
  Receipt Date: 20231220
  Transmission Date: 20240109
  Serious: Yes (Other)
  Sender: FDA-Public Use
  Company Number: JP-BRISTOL-MYERS SQUIBB COMPANY-2023-180431

PATIENT
  Sex: Female

DRUGS (2)
  1. ORENCIA [Suspect]
     Active Substance: ABATACEPT
     Indication: Product used for unknown indication
     Dosage: THE PATIENT SELF-INJECT IT EVERY TUESDAY. EVERY TIME THE PATIENT INJECT IT AFTER BREAKFAST.
     Route: 058
  2. COVID-19 VACCINE [Concomitant]
     Indication: Product used for unknown indication

REACTIONS (7)
  - Device operational issue [Unknown]
  - Injection site discolouration [Unknown]
  - Wrong product stored [Unknown]
  - Product dose omission issue [Unknown]
  - Osteoporosis [Unknown]
  - Compression fracture [Unknown]
  - Wrong technique in product usage process [Unknown]
